FAERS Safety Report 19078788 (Version 1)
Quarter: 2021Q1

REPORT INFORMATION
  Report Type: Report from Study
  Country: GB (occurrence: GB)
  Receive Date: 20210331
  Receipt Date: 20210331
  Transmission Date: 20210420
  Serious: Yes (Hospitalization)
  Sender: FDA-Public Use
  Company Number: GB-PFIZER INC-2021314905

PATIENT

DRUGS (2)
  1. MITOXANTRONE HCL [Suspect]
     Active Substance: MITOXANTRONE HYDROCHLORIDE
     Indication: ACUTE MYELOID LEUKAEMIA
     Dosage: 7.6 MG/M2, 1X/DAY ((IN D./QUOTID/O.D.))
     Route: 042
     Dates: start: 20210109, end: 20210224
  2. GEMTUZUMAB OZOGAMICIN [Suspect]
     Active Substance: GEMTUZUMAB OZOGAMICIN
     Indication: ACUTE MYELOID LEUKAEMIA
     Dosage: 1.9 MG (OTHER (SPECIFY REASON AS FREE TEXT UNDER CODE ON FORM))
     Route: 042
     Dates: start: 20210112, end: 20210112

REACTIONS (1)
  - Febrile neutropenia [Recovered/Resolved]

NARRATIVE: CASE EVENT DATE: 20210306
